FAERS Safety Report 6223308-6 (Version None)
Quarter: 2009Q2

REPORT INFORMATION
  Report Type: 
  Country: None (occurrence: None)
  Receive Date: 20090609
  Receipt Date: 20090602
  Transmission Date: 20091009
  Serious: Yes (Death, Life-Threatening, Hospitalization)
  Sender: FDA-Public Use
  Company Number: GB-WYE-G03778109

PATIENT
  Age: 57 Year
  Sex: Female

DRUGS (10)
  1. PIPERACILLIN AND TAZOBACTAM [Suspect]
     Indication: PNEUMONIA
     Dosage: 4.5 G 3X PER 1 DAY INTRAVENOUS
     Route: 042
     Dates: start: 20090513, end: 20090514
  2. CLARITHROMYCIN [Suspect]
     Indication: PNEUMONIA
     Dosage: 500 MG 4X PER 1 DAY INTRAVENOUS
     Route: 042
     Dates: start: 20090508, end: 20090513
  3. HEPARIN SODIUM [Suspect]
  4. AMOXICILLIN [Concomitant]
  5. IPRATROPIUM BROMIDE [Concomitant]
  6. LITHIUM CARBONATE [Concomitant]
  7. ACETAMINOPHEN [Concomitant]
  8. SALBUTAMOL (SALBUTAMOL) [Concomitant]
  9. THEOPHYLLINE [Concomitant]
  10. TIGECYCLINE (TIGECYCLINE) [Concomitant]

REACTIONS (4)
  - BRONCHOPNEUMONIA [None]
  - HEPATITIS [None]
  - RENAL FAILURE [None]
  - THROMBOCYTOPENIC PURPURA [None]
